FAERS Safety Report 6769184-4 (Version None)
Quarter: 2010Q2

REPORT INFORMATION
  Report Type: 
  Country: None (occurrence: None)
  Receive Date: 20100604
  Receipt Date: 20100524
  Transmission Date: 20101027
  Serious: Yes (Other)
  Sender: FDA-Public Use
  Company Number: WAES 1005USA04463

PATIENT
  Age: 51 Year
  Sex: Female

DRUGS (1)
  1. HYZAAR [Suspect]
     Indication: HYPERTENSION
     Dosage: 1 TAB DAILY, PO
     Route: 048
     Dates: start: 20070918

REACTIONS (1)
  - BLOOD URIC ACID INCREASED [None]
